FAERS Safety Report 7138086-6 (Version None)
Quarter: 2010Q4

REPORT INFORMATION
  Report Type: 
  Country: None (occurrence: None)
  Receive Date: 20101206
  Receipt Date: 20101126
  Transmission Date: 20110411
  Serious: Yes (Life-Threatening, Hospitalization, Other)
  Sender: FDA-Public Use
  Company Number: GB-ABBOTT-10P-167-0685671-00

PATIENT
  Sex: Female
  Weight: 58 kg

DRUGS (2)
  1. HUMIRA [Suspect]
     Indication: CROHN'S DISEASE
     Dates: start: 20100422, end: 20101005
  2. HUMIRA [Suspect]

REACTIONS (2)
  - AUTOIMMUNE HEPATITIS [None]
  - LIVER FUNCTION TEST ABNORMAL [None]
